FAERS Safety Report 4577863-2 (Version None)
Quarter: 2005Q1

REPORT INFORMATION
  Report Type: 
  Country: None (occurrence: None)
  Receive Date: 20050209
  Receipt Date: 20050128
  Transmission Date: 20050727
  Serious: Yes (Other)
  Sender: FDA-Public Use
  Company Number: 2005023426

PATIENT
  Age: 50 Year
  Sex: Female

DRUGS (2)
  1. ACCURETIC [Suspect]
     Indication: HYPERTENSION
     Dosage: SEE IMAGE
     Route: 049
     Dates: end: 20041201
  2. ACCURETIC [Suspect]
     Indication: HYPERTENSION
     Dosage: SEE IMAGE
     Route: 049
     Dates: start: 20040801

REACTIONS (3)
  - BLOOD PRESSURE INCREASED [None]
  - MALAISE [None]
  - SWOLLEN TONGUE [None]
